FAERS Safety Report 23513056 (Version 3)
Quarter: 2024Q1

REPORT INFORMATION
  Report Type: Spontaneous
  Country: DE (occurrence: DE)
  Receive Date: 20240212
  Receipt Date: 20240226
  Transmission Date: 20240409
  Serious: Yes (Other)
  Sender: FDA-Public Use
  Company Number: DE-MLMSERVICE-20240201-4807160-1

PATIENT
  Age: 6 Month
  Sex: Female
  Weight: 6.3 kg

DRUGS (3)
  1. HYDROCORTISONE SODIUM SUCCINATE [Suspect]
     Active Substance: HYDROCORTISONE SODIUM SUCCINATE
     Indication: Pseudohypoaldosteronism
     Dosage: 100 MG/M2 LOADING DOSE
  2. HYDROCORTISONE SODIUM SUCCINATE [Suspect]
     Active Substance: HYDROCORTISONE SODIUM SUCCINATE
     Dosage: 100 MG/M2, PARENTERAL HYDROCORTISONE SUPPLEMENTATION
     Route: 051
  3. FLUDROCORTISONE [Suspect]
     Active Substance: FLUDROCORTISONE
     Indication: Pseudohypoaldosteronism
     Dosage: UNK

REACTIONS (4)
  - Ventricular extrasystoles [Unknown]
  - Hypertension [Recovered/Resolved]
  - Bradycardia [Recovered/Resolved]
  - Off label use [Unknown]
